FAERS Safety Report 17283047 (Version 10)
Quarter: 2021Q3

REPORT INFORMATION
  Report Type: Report from Study
  Country: KR (occurrence: KR)
  Receive Date: 20200117
  Receipt Date: 20210824
  Transmission Date: 20211014
  Serious: Yes (Death, Life-Threatening, Hospitalization)
  Sender: FDA-Public Use
  Company Number: NVSC2019KR072920

PATIENT
  Age: 64 Year
  Sex: Male
  Weight: 83.8 kg

DRUGS (29)
  1. COMPARATOR CARBOPLATIN [Suspect]
     Active Substance: CARBOPLATIN
     Indication: NON-SMALL CELL LUNG CANCER
     Dosage: 763 MG, Q3W
     Route: 042
     Dates: start: 20191002
  2. CANAKINUMAB. [Suspect]
     Active Substance: CANAKINUMAB
     Indication: NON-SMALL CELL LUNG CANCER
     Dosage: UNK
     Route: 042
     Dates: start: 20191002, end: 20191224
  3. LOSARTAN POTASSIUM. [Concomitant]
     Active Substance: LOSARTAN POTASSIUM
     Indication: HYPERTENSION
     Dosage: UNK
     Route: 065
     Dates: start: 20140101
  4. GLIMEPIRIDE. [Concomitant]
     Active Substance: GLIMEPIRIDE
     Indication: DIABETES MELLITUS
     Dosage: UNK
     Route: 065
     Dates: start: 20140101
  5. CHLORHEXIDINE [Concomitant]
     Active Substance: CHLORHEXIDINE
     Indication: DENTAL DISORDER PROPHYLAXIS
     Dosage: UNK
     Route: 065
     Dates: start: 20191219
  6. COMPARATOR PEMBROLIZUMAB [Suspect]
     Active Substance: PEMBROLIZUMAB
     Indication: NON-SMALL CELL LUNG CANCER
     Dosage: 200 MG, Q3W
     Route: 042
     Dates: start: 20191002, end: 20191211
  7. ENOXAPARIN [Concomitant]
     Active Substance: ENOXAPARIN
     Indication: THROMBOSIS PROPHYLAXIS
     Dosage: UNK
     Route: 065
     Dates: start: 20191220
  8. REMIFENTANIL [Concomitant]
     Active Substance: REMIFENTANIL
     Indication: SEDATION
     Dosage: UNK
     Route: 065
     Dates: start: 20191219
  9. MGO [Concomitant]
     Active Substance: MAGNESIUM OXIDE
     Indication: CONSTIPATION
     Dosage: UNK
     Route: 065
     Dates: start: 20191023
  10. ITOPRIDE [Concomitant]
     Active Substance: ITOPRIDE
     Indication: NAUSEA
     Dosage: UNK
     Route: 065
     Dates: start: 20191211
  11. ACETAMINOPHEN. [Concomitant]
     Active Substance: ACETAMINOPHEN
     Indication: PYREXIA
     Dosage: UNK
     Route: 065
     Dates: start: 20191217, end: 20191217
  12. PANTOPRAZOLE [Concomitant]
     Active Substance: PANTOPRAZOLE
     Indication: GASTROINTESTINAL DISORDER PROPHYLAXIS
     Dosage: UNK
     Route: 065
     Dates: start: 20191219, end: 20191226
  13. PIOGLITAZONE. [Concomitant]
     Active Substance: PIOGLITAZONE
     Indication: DIABETES MELLITUS
     Dosage: UNK
     Route: 065
     Dates: start: 20140101
  14. VASOPRESSINE [Concomitant]
     Active Substance: VASOPRESSIN
     Indication: HYPERTENSION
     Dosage: UNK
     Route: 065
     Dates: start: 20191220, end: 20191220
  15. FAMOTIDINE. [Concomitant]
     Active Substance: FAMOTIDINE
     Indication: GASTROINTESTINAL DISORDER PROPHYLAXIS
     Dosage: UNK
     Route: 065
     Dates: start: 20191227
  16. PALONOSETRON. [Concomitant]
     Active Substance: PALONOSETRON HYDROCHLORIDE
     Dosage: UNK
     Route: 065
     Dates: start: 20191211, end: 20191211
  17. BENPROPERINE [Concomitant]
     Active Substance: BENPROPERINE
     Indication: COUGH
     Dosage: UNK
     Route: 065
     Dates: start: 20191211
  18. MIDAZOLAM. [Concomitant]
     Active Substance: MIDAZOLAM
     Indication: SEDATION
     Dosage: UNK
     Route: 065
     Dates: start: 20191219, end: 20191219
  19. COMPARATOR NAB?PACLITAXEL [Suspect]
     Active Substance: PACLITAXEL
     Indication: NON-SMALL CELL LUNG CANCER
     Dosage: 200 MG, QW
     Route: 042
     Dates: start: 20191002
  20. LERCANIDIPINE [Concomitant]
     Active Substance: LERCANIDIPINE
     Indication: HYPERTENSION
     Dosage: UNK
     Route: 065
     Dates: start: 20140101
  21. FUROSEMIDE. [Concomitant]
     Active Substance: FUROSEMIDE
     Indication: PRODUCT USED FOR UNKNOWN INDICATION
     Dosage: UNK
     Route: 065
     Dates: start: 20191219
  22. TRAMADOL/ACETAMINOPHEN [Concomitant]
     Active Substance: ACETAMINOPHEN\TRAMADOL
     Indication: CHEST PAIN
     Dosage: UNK
     Route: 065
     Dates: start: 20190910
  23. PALONOSETRON. [Concomitant]
     Active Substance: PALONOSETRON HYDROCHLORIDE
     Indication: NON-SMALL CELL LUNG CANCER
     Dosage: UNK
     Route: 065
     Dates: start: 20191127, end: 20191127
  24. PALONOSETRON. [Concomitant]
     Active Substance: PALONOSETRON HYDROCHLORIDE
     Dosage: UNK
     Route: 065
     Dates: start: 20191204, end: 20191204
  25. POTASSIUM [Concomitant]
     Active Substance: POTASSIUM
     Indication: PROPHYLAXIS
     Dosage: UNK
     Route: 065
     Dates: start: 20191218, end: 20191218
  26. PROPOFOL. [Concomitant]
     Active Substance: PROPOFOL
     Indication: SEDATION
     Dosage: UNK
     Route: 065
     Dates: start: 20191219
  27. CALCIUM GLUCONATE. [Concomitant]
     Active Substance: CALCIUM GLUCONATE
     Indication: PROPHYLAXIS
     Dosage: UNK
     Route: 065
     Dates: start: 20191222, end: 20191223
  28. THIOCTIC ACID [Concomitant]
     Active Substance: .ALPHA.-LIPOIC ACID
     Indication: DIABETES MELLITUS
     Dosage: UNK
     Route: 065
     Dates: start: 20140101
  29. CLETAMIN [Concomitant]
     Indication: NUTRITIONAL SUPPLEMENTATION
     Dosage: UNK
     Route: 065
     Dates: start: 20191223

REACTIONS (1)
  - Pneumonitis [Fatal]

NARRATIVE: CASE EVENT DATE: 20191217
